FAERS Safety Report 15750999 (Version 1)
Quarter: 2018Q4

REPORT INFORMATION
  Report Type: Spontaneous
  Country: US (occurrence: US)
  Receive Date: 20181221
  Receipt Date: 20181221
  Transmission Date: 20190205
  Serious: No
  Sender: FDA-Public Use
  Company Number: US-THERAPEUTICSMD-2018TMD00391

PATIENT
  Age: 78 Year
  Sex: Female
  Weight: 72.56 kg

DRUGS (3)
  1. VITAMINS [Concomitant]
     Active Substance: VITAMINS
  2. DULOXETINE. [Concomitant]
     Active Substance: DULOXETINE
  3. IMVEXXY [Suspect]
     Active Substance: ESTRADIOL
     Indication: PROLAPSE
     Dosage: 10 ?G, EVERY 48 HOURS BEFORE BED
     Route: 067
     Dates: start: 20181111, end: 20181126

REACTIONS (5)
  - Increased appetite [Recovered/Resolved]
  - Weight increased [Recovered/Resolved]
  - Abdominal discomfort [Recovered/Resolved]
  - Off label use [Recovered/Resolved]
  - Product dose omission [Recovered/Resolved]

NARRATIVE: CASE EVENT DATE: 201811
